FAERS Safety Report 20439292 (Version 1)
Quarter: 2022Q1

REPORT INFORMATION
  Report Type: Report from Study
  Country: FR (occurrence: FR)
  Receive Date: 20220207
  Receipt Date: 20220207
  Transmission Date: 20220423
  Serious: Yes (Life-Threatening)
  Sender: FDA-Public Use
  Company Number: FR-NOVARTISPH-NVSC2022FR025985

PATIENT
  Age: 58 Year
  Sex: Male
  Weight: 85 kg

DRUGS (4)
  1. MIDOSTAURIN [Suspect]
     Active Substance: MIDOSTAURIN
     Indication: Acute leukaemia
     Dosage: 100 MILLIGRAM EVERY 2 DAY / 50 MG MATIN ET 50 MG SOIR
     Route: 048
     Dates: start: 20211111, end: 20211118
  2. IDARUBICIN [Suspect]
     Active Substance: IDARUBICIN
     Indication: Acute leukaemia
     Dosage: UNKNOWN / D1 D2 D3 ~ 90 MG/M?; NUMBER OF SEPARATE DOSAGE
     Route: 041
     Dates: start: 20211104, end: 20211106
  3. CYTARABINE [Suspect]
     Active Substance: CYTARABINE
     Indication: Acute leukaemia
     Dosage: UNKNOWN / D1 D2 D3 D4 D5 D6 D7 ~ 200 MG/M?; NUMBER OF SEPARATE DOSAGE
     Route: 041
     Dates: start: 20211104, end: 20211110
  4. POSACONAZOLE [Suspect]
     Active Substance: POSACONAZOLE
     Indication: Product used for unknown indication
     Dosage: 600 MILLIGRAM/DAY (300 MG X 2/J)
     Route: 048
     Dates: start: 20211111, end: 20211118

REACTIONS (1)
  - Hepatic cytolysis [Recovered/Resolved]

NARRATIVE: CASE EVENT DATE: 20211114
